FAERS Safety Report 11762653 (Version 4)
Quarter: 2016Q2

REPORT INFORMATION
  Report Type: Report from Study
  Country: GB (occurrence: GB)
  Receive Date: 20151120
  Receipt Date: 20160422
  Transmission Date: 20160815
  Serious: Yes (Life-Threatening, Hospitalization, Other)
  Sender: FDA-Public Use
  Company Number: GB-ASTRAZENECA-2015SF12676

PATIENT
  Age: 21017 Day
  Sex: Male

DRUGS (5)
  1. ACETYLSALICYLIC ACID [Suspect]
     Active Substance: ASPIRIN
     Indication: ACUTE CORONARY SYNDROME
     Dosage: NON-AZ PRODUCT
     Route: 048
     Dates: start: 20141109, end: 20150727
  2. TICAGRELOR [Suspect]
     Active Substance: TICAGRELOR
     Indication: THROMBOSIS PROPHYLAXIS
     Route: 048
     Dates: start: 20141109
  3. ACETYLSALICYLIC ACID [Suspect]
     Active Substance: ASPIRIN
     Indication: THROMBOSIS PROPHYLAXIS
     Dosage: NON-AZ PRODUCT
     Route: 048
     Dates: start: 20141109, end: 20150727
  4. TICAGRELOR [Suspect]
     Active Substance: TICAGRELOR
     Indication: ACUTE CORONARY SYNDROME
     Route: 048
     Dates: start: 20141109
  5. ATORVASTATIN [Concomitant]
     Active Substance: ATORVASTATIN
     Indication: HYPERLIPIDAEMIA
     Dosage: 80 MG

REACTIONS (4)
  - Gastrointestinal carcinoma [Not Recovered/Not Resolved]
  - Iron deficiency anaemia [Recovering/Resolving]
  - Seizure [Recovered/Resolved with Sequelae]
  - Oesophagitis [Recovering/Resolving]

NARRATIVE: CASE EVENT DATE: 20150621
